FAERS Safety Report 7535173-5 (Version None)
Quarter: 2011Q2

REPORT INFORMATION
  Report Type: 
  Country: None (occurrence: None)
  Receive Date: 20110609
  Receipt Date: 20090401
  Transmission Date: 20111010
  Serious: Yes (Death)
  Sender: FDA-Public Use
  Company Number: PHHY2009JP08761

PATIENT
  Sex: Female
  Weight: 47 kg

DRUGS (6)
  1. VALSARTAN [Suspect]
     Dosage: 40 MG
     Route: 048
     Dates: start: 20071119, end: 20080929
  2. AMLODIPINE [Concomitant]
     Dosage: 2.5 MG
     Route: 048
     Dates: end: 20081125
  3. VALSARTAN [Suspect]
     Dosage: 40 MG, BID
     Route: 048
     Dates: start: 20080930, end: 20081125
  4. AMLODIPINE [Concomitant]
     Indication: HYPERTENSION
     Dosage: 5 MG, UNK
     Route: 048
     Dates: start: 20071105
  5. TRICHLON [Concomitant]
     Indication: HYPERTENSION
     Dosage: UNK
     Route: 048
     Dates: start: 20080428, end: 20081125
  6. LOXONIN [Concomitant]
     Dosage: 180 MG, UNK
     Route: 048
     Dates: start: 20070713, end: 20071107

REACTIONS (1)
  - DEATH [None]
